FAERS Safety Report 16237781 (Version 1)
Quarter: 2019Q2

REPORT INFORMATION
  Report Type: Spontaneous
  Country: DE (occurrence: DE)
  Receive Date: 20190425
  Receipt Date: 20190425
  Transmission Date: 20190711
  Serious: Yes (Other)
  Sender: FDA-Public Use
  Company Number: DE-TEVA-2019-DE-1042217

PATIENT
  Age: 3 Year
  Sex: Male
  Weight: 14 kg

DRUGS (1)
  1. IBU-RATIOPHARM FIEBERSAFT FUR KINDER 40 MG/ML [Suspect]
     Active Substance: IBUPROFEN
     Dosage: 2.5ML ONCE
     Route: 048
     Dates: start: 20190404, end: 20190404

REACTIONS (1)
  - Hypothermia [Recovered/Resolved]

NARRATIVE: CASE EVENT DATE: 20190404
